FAERS Safety Report 25732988 (Version 2)
Quarter: 2025Q4

REPORT INFORMATION
  Report Type: Spontaneous
  Country: CN (occurrence: CN)
  Receive Date: 20250828
  Receipt Date: 20251117
  Transmission Date: 20260117
  Serious: Yes (Hospitalization, Other)
  Sender: GLAXOSMITHKLINE
  Company Number: CN-GLAXOSMITHKLINE INC-CN2025GSK109042

PATIENT
  Age: 52 Year
  Sex: Female
  Weight: 45 kg

DRUGS (29)
  1. MEPOLIZUMAB [Suspect]
     Active Substance: MEPOLIZUMAB
     Indication: Eosinophilic granulomatosis with polyangiitis
     Dosage: 100 MG, Q4W
  2. MEPOLIZUMAB [Suspect]
     Active Substance: MEPOLIZUMAB
     Indication: Asthma
  3. ATORVASTATIN CALCIUM [Concomitant]
     Active Substance: ATORVASTATIN CALCIUM
     Indication: Hyperlipidaemia
     Dosage: 20 MG, 1D
  4. PREDNISONE [Concomitant]
     Active Substance: PREDNISONE
     Indication: Asthma
     Dosage: 15 MG, 1D
  5. PREDNISONE [Concomitant]
     Active Substance: PREDNISONE
     Dosage: 30 MG, 1D
  6. PREDNISONE [Concomitant]
     Active Substance: PREDNISONE
     Dosage: GRADUALLY TAPERED TO 5-10
  7. PREDNISONE [Concomitant]
     Active Substance: PREDNISONE
     Dosage: 5 MG, 1D
  8. PREDNISONE [Concomitant]
     Active Substance: PREDNISONE
     Dosage: 10 MG, 1D
  9. PREDNISONE [Concomitant]
     Active Substance: PREDNISONE
     Dosage: 5 MG, 1D
  10. MONTELUKAST SODIUM [Concomitant]
     Active Substance: MONTELUKAST SODIUM
     Indication: Asthma
     Dosage: 10 MG ONCE NIGHTLY
  11. BUDESONIDE\FORMOTEROL [Concomitant]
     Active Substance: BUDESONIDE\FORMOTEROL
     Indication: Asthma
     Dosage: BUDESONIDE 320 UG / FORMOTEROL 9 UG, TWICE DAILY, 1 INHALATION PER DOSE
  12. GINKGO BILOBA LEAF EXTRACT [Concomitant]
     Active Substance: GINKGO BILOBA LEAF EXTRACT
     Indication: Eustachian tube obstruction
     Dosage: UNK, TID
  13. GINKGO BILOBA LEAF EXTRACT [Concomitant]
     Active Substance: GINKGO BILOBA LEAF EXTRACT
     Indication: Chronic sinusitis
  14. METHYLCOBALAMIN [Concomitant]
     Active Substance: METHYLCOBALAMIN
     Indication: Chronic sinusitis
     Dosage: 0.5 MG, TID
  15. METHYLCOBALAMIN [Concomitant]
     Active Substance: METHYLCOBALAMIN
     Indication: Eustachian tube obstruction
  16. OMEPRAZOLE [Concomitant]
     Active Substance: OMEPRAZOLE
     Indication: Eustachian tube obstruction
     Dosage: 20 MG, BID
  17. OMEPRAZOLE [Concomitant]
     Active Substance: OMEPRAZOLE
     Indication: Chronic sinusitis
  18. DEXAMETHASONE [Concomitant]
     Active Substance: DEXAMETHASONE
     Indication: Chronic sinusitis
     Dosage: UNK
  19. DEXAMETHASONE [Concomitant]
     Active Substance: DEXAMETHASONE
     Indication: Eustachian tube obstruction
  20. EPHEDRINE [Concomitant]
     Active Substance: EPHEDRINE
     Indication: Eustachian tube obstruction
     Dosage: UNK
  21. EPHEDRINE [Concomitant]
     Active Substance: EPHEDRINE
     Indication: Chronic sinusitis
  22. MOMETASONE FUROATE [Concomitant]
     Active Substance: MOMETASONE FUROATE
     Indication: Chronic sinusitis
     Dosage: UNK
  23. MOMETASONE FUROATE [Concomitant]
     Active Substance: MOMETASONE FUROATE
     Indication: Eustachian tube obstruction
  24. EUCALYPTOL [Concomitant]
     Active Substance: EUCALYPTOL
     Indication: Eustachian tube obstruction
     Dosage: UNK
  25. EUCALYPTOL [Concomitant]
     Active Substance: EUCALYPTOL
     Indication: Chronic sinusitis
  26. LIMONENE, (+/-)- [Concomitant]
     Active Substance: LIMONENE, (+/-)-
     Indication: Chronic sinusitis
     Dosage: UNK
  27. LIMONENE, (+/-)- [Concomitant]
     Active Substance: LIMONENE, (+/-)-
     Indication: Eustachian tube obstruction
  28. PINENE [Concomitant]
     Indication: Eustachian tube obstruction
     Dosage: UNK
  29. PINENE [Concomitant]
     Indication: Chronic sinusitis

REACTIONS (1)
  - Drug-induced liver injury [Recovered/Resolved]

NARRATIVE: CASE EVENT DATE: 20240501
